FAERS Safety Report 11691141 (Version 4)
Quarter: 2016Q1

REPORT INFORMATION
  Report Type: Report from Study
  Country: BR (occurrence: BR)
  Receive Date: 20151102
  Receipt Date: 20160106
  Transmission Date: 20160525
  Serious: Yes (Hospitalization, Other)
  Sender: FDA-Public Use
  Company Number: PHHY2015BR138136

PATIENT
  Sex: Female
  Weight: 40 kg

DRUGS (3)
  1. EXJADE [Suspect]
     Active Substance: DEFERASIROX
     Indication: THALASSAEMIA
  2. HYDROXYUREA. [Concomitant]
     Active Substance: HYDROXYUREA
     Indication: SICKLE CELL ANAEMIA
     Dosage: 1 DF OF 500 MG, QD
     Route: 048
  3. EXJADE [Suspect]
     Active Substance: DEFERASIROX
     Indication: SICKLE CELL ANAEMIA
     Dosage: 20 MG/KG, 750 MG, QD (2 DF OF 500 MG AND 1 DF OF 250 MG)
     Route: 048
     Dates: start: 201105

REACTIONS (13)
  - Pneumonia [Recovered/Resolved]
  - Dyspnoea [Recovering/Resolving]
  - Haemoglobin decreased [Recovering/Resolving]
  - Abdominal distension [Unknown]
  - Cardiac disorder [Unknown]
  - Cardiac murmur [Not Recovered/Not Resolved]
  - Fluid retention [Recovering/Resolving]
  - Swelling [Recovering/Resolving]
  - Lip discolouration [Recovering/Resolving]
  - Peripheral swelling [Unknown]
  - Hepatomegaly [Not Recovered/Not Resolved]
  - Oxygen saturation decreased [Unknown]
  - Fatigue [Recovering/Resolving]
